FAERS Safety Report 17534360 (Version 2)
Quarter: 2020Q1

REPORT INFORMATION
  Report Type: Spontaneous
  Country: DE (occurrence: DE)
  Receive Date: 20200312
  Receipt Date: 20200319
  Transmission Date: 20200409
  Serious: Yes (Hospitalization)
  Sender: FDA-Public Use
  Company Number: DE-MYLANLABS-2020M1026563

PATIENT
  Age: 54 Year
  Sex: Male
  Weight: 93 kg

DRUGS (6)
  1. PANTOPRAZOL                        /01263201/ [Concomitant]
     Active Substance: PANTOPRAZOLE
     Dosage: 40 MILLIGRAM, QD,  0-0-1-0
     Route: 048
  2. ACETYLSALICYLIC ACID [Concomitant]
     Active Substance: ASPIRIN
     Dosage: 100 MILLIGRAM, QD, 1-0-0-0
     Route: 048
  3. BISOPROLOL [Suspect]
     Active Substance: BISOPROLOL
     Indication: PRODUCT USED FOR UNKNOWN INDICATION
     Dosage: 5 MILLIGRAM, 1-0-1-0
     Route: 048
  4. ALLOPURINOL. [Concomitant]
     Active Substance: ALLOPURINOL
     Dosage: 100 MILLIGRAM, QD, 0-0-1-0
     Route: 048
  5. HYDROCHLOROTHIAZIDE W/TELMISARTAN [Concomitant]
     Active Substance: HYDROCHLOROTHIAZIDE\TELMISARTAN
     Dosage: 12.5|80 MG, 0.5-0-0-0
     Route: 048
  6. ATORVASTATIN [Concomitant]
     Active Substance: ATORVASTATIN
     Dosage: 80 MILLIGRAM, QD, 0-0-1-0
     Route: 048

REACTIONS (7)
  - Anxiety [Unknown]
  - Pain [Unknown]
  - Fear of disease [Unknown]
  - Nausea [Unknown]
  - Product prescribing error [Unknown]
  - Dizziness [Unknown]
  - Bradycardia [Unknown]

NARRATIVE: CASE EVENT DATE: 20190708
